FAERS Safety Report 10163357 (Version 1)
Quarter: 2014Q2

REPORT INFORMATION
  Report Type: Spontaneous
  Country: IT (occurrence: IT)
  Receive Date: 20140509
  Receipt Date: 20140509
  Transmission Date: 20141212
  Serious: Yes (Hospitalization)
  Sender: FDA-Public Use
  Company Number: IT-TEVA-479674ISR

PATIENT
  Age: 60 Year
  Sex: Female

DRUGS (1)
  1. AMOXICILLIN W/CLAVULANIC ACID [Suspect]
     Indication: BRONCHITIS
     Route: 048
     Dates: start: 20140307, end: 20140315

REACTIONS (3)
  - Abdominal pain upper [Recovered/Resolved]
  - Blister [Recovered/Resolved]
  - Pruritus generalised [Recovered/Resolved]
